FAERS Safety Report 8349047-3 (Version None)
Quarter: 2012Q2

REPORT INFORMATION
  Report Type: 
  Country: None (occurrence: None)
  Receive Date: 20120508
  Receipt Date: 20120504
  Transmission Date: 20120825
  Serious: Yes (Hospitalization)
  Sender: FDA-Public Use
  Company Number: SP05328

PATIENT
  Age: 46 Year
  Sex: Female

DRUGS (9)
  1. POLYETHYLENE GLYCOL [Concomitant]
  2. COLACE [Concomitant]
  3. HYDROMORPH CONTIN (SUSTAINED-- RELEASE CAPSULE) [Concomitant]
  4. SENOKOT [Concomitant]
  5. DILAUDID [Concomitant]
  6. RELISTOR [Suspect]
     Dosage: (12 MG), SUBCUTANEOUS
     Route: 058
  7. NOZINAN [Concomitant]
  8. ALENDRONATE SODIUM [Concomitant]
  9. EPIPEN [Concomitant]

REACTIONS (3)
  - NO THERAPEUTIC RESPONSE [None]
  - VOMITING [None]
  - NAUSEA [None]
